FAERS Safety Report 5566842-4 (Version None)
Quarter: 2007Q4

REPORT INFORMATION
  Report Type: 
  Country: None (occurrence: None)
  Receive Date: 20071214
  Receipt Date: 20071206
  Transmission Date: 20080405
  Serious: Yes (Hospitalization, Other)
  Sender: FDA-Public Use
  Company Number: VNL-00792_2007

PATIENT
  Sex: Female

DRUGS (2)
  1. APOKYN [Suspect]
     Indication: PARKINSON'S DISEASE
     Dosage: 0.3 ML 1X SUBCUTANEOUS; 0.2 ML 1X SUBCUTANEOUS
     Route: 058
     Dates: start: 20070925, end: 20070925
  2. APOKYN [Suspect]
     Indication: PARKINSON'S DISEASE
     Dosage: 0.3 ML 1X SUBCUTANEOUS; 0.2 ML 1X SUBCUTANEOUS
     Route: 058
     Dates: start: 20071004, end: 20071004

REACTIONS (5)
  - BLOOD PRESSURE INCREASED [None]
  - HYPERHIDROSIS [None]
  - HYPOTENSION [None]
  - LOSS OF CONSCIOUSNESS [None]
  - PALLOR [None]
